FAERS Safety Report 4758319-0 (Version None)
Quarter: 2005Q3

REPORT INFORMATION
  Report Type: 
  Country: None (occurrence: None)
  Receive Date: 20050826
  Receipt Date: 20050518
  Transmission Date: 20060218
  Serious: No
  Sender: FDA-Public Use
  Company Number: WAES 0505USA02638

PATIENT
  Age: 75 Year
  Sex: Male

DRUGS (2)
  1. ZETIA [Suspect]
     Dosage: 10 MG/UNK/PO
     Route: 048
  2. ZOCOR [Concomitant]

REACTIONS (1)
  - LIVER FUNCTION TEST ABNORMAL [None]
